FAERS Safety Report 5647478-3 (Version None)
Quarter: 2008Q1

REPORT INFORMATION
  Report Type: 
  Country: None (occurrence: None)
  Receive Date: 20080303
  Receipt Date: 20080226
  Transmission Date: 20080703
  Serious: Yes (Disabling)
  Sender: FDA-Public Use
  Company Number: DE-BAYER-200810616GPV

PATIENT
  Age: 51 Year
  Sex: Female
  Weight: 72 kg

DRUGS (1)
  1. AVELOX [Suspect]
     Indication: SINOBRONCHITIS
     Route: 065
     Dates: start: 20071205, end: 20071215

REACTIONS (1)
  - ALOPECIA [None]
